FAERS Safety Report 18091386 (Version 1)
Quarter: 2020Q3

REPORT INFORMATION
  Report Type: Spontaneous
  Country: US (occurrence: US)
  Receive Date: 20200729
  Receipt Date: 20200729
  Transmission Date: 20201103
  Serious: No
  Sender: FDA-Public Use
  Company Number: None

PATIENT
  Age: 25 Year
  Sex: Female
  Weight: 63 kg

DRUGS (1)
  1. DEXTROAMPHET SACCHARAT, AMPHET ASPARTATE, DEXTROAMPHET SULFATE AND AMPHET SULFAT [Suspect]
     Active Substance: AMPHETAMINE ASPARTATE\AMPHETAMINE SULFATE\DEXTROAMPHETAMINE SACCHARATE\DEXTROAMPHETAMINE SULFATE
     Indication: ATTENTION DEFICIT HYPERACTIVITY DISORDER
     Dosage: ?          QUANTITY:1 TABLET(S);?

REACTIONS (9)
  - Irritability [None]
  - Restless legs syndrome [None]
  - Therapeutic product effect decreased [None]
  - Anxiety [None]
  - Poor quality sleep [None]
  - Product substitution issue [None]
  - Disturbance in attention [None]
  - Lethargy [None]
  - Apathy [None]

NARRATIVE: CASE EVENT DATE: 20200727
